FAERS Safety Report 20427826 (Version 1)
Quarter: 2022Q1

REPORT INFORMATION
  Report Type: Other
  Country: US (occurrence: US)
  Receive Date: 20220204
  Receipt Date: 20220204
  Transmission Date: 20220423
  Serious: No
  Sender: FDA-Public Use
  Company Number: US-NEUROCRINE BIOSCIENCES INC.-2022NBI00404

PATIENT

DRUGS (1)
  1. INGREZZA [Suspect]
     Active Substance: VALBENAZINE
     Indication: Tardive dyskinesia
     Dosage: 40 MILLIGRAM, QD
     Route: 048
     Dates: start: 20220121, end: 20220121

REACTIONS (4)
  - Dysarthria [Unknown]
  - Confusional state [Unknown]
  - Somnolence [Unknown]
  - Ataxia [Unknown]

NARRATIVE: CASE EVENT DATE: 20220101
